FAERS Safety Report 25563736 (Version 1)
Quarter: 2025Q3

REPORT INFORMATION
  Report Type: Spontaneous
  Country: EU (occurrence: EU)
  Receive Date: 20250716
  Receipt Date: 20250716
  Transmission Date: 20251021
  Serious: Yes (Life-Threatening, Hospitalization, Other)
  Sender: ALKEM
  Company Number: EU-ALKEM LABORATORIES LIMITED-FR-ALKEM-2024-21723

PATIENT
  Age: 59 Year
  Sex: Female

DRUGS (14)
  1. VENLAFAXINE [Interacting]
     Active Substance: VENLAFAXINE HYDROCHLORIDE
     Indication: Renal cancer metastatic
     Dosage: 75 MILLIGRAM, QD
     Route: 065
  2. VENLAFAXINE [Interacting]
     Active Substance: VENLAFAXINE HYDROCHLORIDE
     Indication: Pulmonary embolism
  3. VENLAFAXINE [Interacting]
     Active Substance: VENLAFAXINE HYDROCHLORIDE
     Indication: Tumour thrombosis
  4. ASPIRIN [Interacting]
     Active Substance: ASPIRIN
     Indication: Renal cancer metastatic
     Dosage: 75 MILLIGRAM, QD
     Route: 048
  5. ASPIRIN [Interacting]
     Active Substance: ASPIRIN
     Indication: Pulmonary embolism
  6. ASPIRIN [Interacting]
     Active Substance: ASPIRIN
     Indication: Antiplatelet therapy
  7. RIVAROXABAN [Interacting]
     Active Substance: RIVAROXABAN
     Indication: Renal cancer metastatic
     Dosage: 20 MILLIGRAM, QD
     Route: 048
  8. RIVAROXABAN [Interacting]
     Active Substance: RIVAROXABAN
     Indication: Tumour thrombosis
  9. RIVAROXABAN [Interacting]
     Active Substance: RIVAROXABAN
     Indication: Pulmonary thrombosis
  10. CABOZANTINIB [Interacting]
     Active Substance: CABOZANTINIB
     Indication: Renal cancer metastatic
     Route: 065
  11. CABOZANTINIB [Interacting]
     Active Substance: CABOZANTINIB
     Indication: Tumour thrombosis
  12. GABAPENTIN [Concomitant]
     Active Substance: GABAPENTIN
     Indication: Product used for unknown indication
     Dosage: 100 MILLIGRAM, TID
     Route: 065
  13. PANTOPRAZOLE [Concomitant]
     Active Substance: PANTOPRAZOLE
     Indication: Product used for unknown indication
     Dosage: 20 MILLIGRAM, QD
     Route: 065
  14. TRAMADOL [Concomitant]
     Active Substance: TRAMADOL
     Indication: Product used for unknown indication
     Route: 065

REACTIONS (8)
  - Anaemia [Unknown]
  - Melaena [Unknown]
  - Rectal haemorrhage [Unknown]
  - Epistaxis [Unknown]
  - Gastrointestinal haemorrhage [Unknown]
  - Haemorrhage [Unknown]
  - Drug interaction [Unknown]
  - Drug level increased [Unknown]
